FAERS Safety Report 7056827-3 (Version None)
Quarter: 2010Q4

REPORT INFORMATION
  Report Type: 
  Country: None (occurrence: None)
  Receive Date: 20101022
  Receipt Date: 20100511
  Transmission Date: 20110411
  Serious: No
  Sender: FDA-Public Use
  Company Number: A0857079A

PATIENT
  Age: 33 Year
  Sex: Female

DRUGS (2)
  1. DUAC [Suspect]
     Indication: ACNE
     Dosage: 1APP TWICE PER DAY
     Route: 061
     Dates: start: 20100101, end: 20100425
  2. NO CONCURRENT MEDICATION [Concomitant]

REACTIONS (4)
  - DRUG INEFFECTIVE [None]
  - DRY SKIN [None]
  - SKIN EXFOLIATION [None]
  - SKIN IRRITATION [None]
